FAERS Safety Report 9781859 (Version 2)
Quarter: 2013Q4

REPORT INFORMATION
  Report Type: Report from Study
  Country: US (occurrence: US)
  Receive Date: 20131225
  Receipt Date: 20131225
  Transmission Date: 20140711
  Serious: Yes (Other)
  Sender: FDA-Public Use
  Company Number: US-ROCHE-1316237

PATIENT
  Age: 69 Year
  Sex: Male

DRUGS (4)
  1. LUCENTIS [Suspect]
     Indication: RETINAL DISORDER
     Dosage: BOTH EYES ARE TREATED
     Route: 050
     Dates: start: 20131015
  2. ACETAMINOPHEN [Concomitant]
     Indication: MUSCULOSKELETAL STIFFNESS
  3. ACETAMINOPHEN [Concomitant]
     Indication: PAIN IN EXTREMITY
  4. ASPIRIN [Concomitant]

REACTIONS (3)
  - Blindness [Unknown]
  - Injection site pain [Recovered/Resolved]
  - Visual acuity reduced [Unknown]
